FAERS Safety Report 8604559 (Version 2)
Quarter: 2014Q2

REPORT INFORMATION
  Report Type: Report from Study
  Country: AU (occurrence: AU)
  Receive Date: 20120608
  Receipt Date: 20140402
  Transmission Date: 20141212
  Serious: Yes (Other)
  Sender: FDA-Public Use
  Company Number: PHHY2012AU043921

PATIENT
  Sex: Male

DRUGS (1)
  1. SANDOSTATIN LAR [Suspect]
     Indication: CARCINOID SYNDROME
     Dosage: 30 MG, UNK
     Route: 030
     Dates: start: 200712

REACTIONS (4)
  - Lupus nephritis [Unknown]
  - Renal impairment [Unknown]
  - Malignant neoplasm progression [Recovering/Resolving]
  - Dyspnoea [Unknown]
